FAERS Safety Report 23228538 (Version 1)
Quarter: 2023Q4

REPORT INFORMATION
  Report Type: Spontaneous
  Country: GB (occurrence: GB)
  Receive Date: 20231125
  Receipt Date: 20231125
  Transmission Date: 20240110
  Serious: Yes (Other)
  Sender: FDA-Public Use
  Company Number: None

PATIENT
  Sex: Female

DRUGS (1)
  1. KYLEENA [Suspect]
     Active Substance: LEVONORGESTREL
     Dosage: 17.5?G/DAY
     Route: 015

REACTIONS (8)
  - Candida infection [Unknown]
  - Back pain [None]
  - Muscle spasms [None]
  - Abdominal distension [None]
  - Nausea [None]
  - Pain [None]
  - Bacterial vaginosis [None]
  - Abdominal pain lower [None]
